FAERS Safety Report 6939605-2 (Version None)
Quarter: 2010Q3

REPORT INFORMATION
  Report Type: 
  Country: None (occurrence: None)
  Receive Date: 20100820
  Receipt Date: 20100820
  Transmission Date: 20110219
  Serious: Yes (Other)
  Sender: FDA-Public Use
  Company Number: CV20100425

PATIENT
  Age: 30 Year
  Sex: Female

DRUGS (3)
  1. CEFOTAXIME [Suspect]
     Indication: SINUSITIS
  2. FOSFOMYCIN (FOSFOMYCIN) (FOSFOMYCIN) [Concomitant]
  3. CIPROFLOXACIN [Concomitant]

REACTIONS (1)
  - ACUTE GENERALISED EXANTHEMATOUS PUSTULOSIS [None]
